FAERS Safety Report 8542802-6 (Version None)
Quarter: 2012Q3

REPORT INFORMATION
  Report Type: 
  Country: None (occurrence: None)
  Receive Date: 20120727
  Receipt Date: 20120720
  Transmission Date: 20120928
  Serious: No
  Sender: FDA-Public Use
  Company Number: US-BIOGENIDEC-2012BI027138

PATIENT
  Age: 54 Year
  Sex: Female

DRUGS (2)
  1. BACLOFEN VIA PUMP [Concomitant]
     Indication: PAIN
  2. TYSABRI [Suspect]
     Indication: MULTIPLE SCLEROSIS
     Route: 042
     Dates: start: 20120213

REACTIONS (3)
  - MUSCULOSKELETAL DISORDER [None]
  - MUSCLE SPASTICITY [None]
  - PAIN IN EXTREMITY [None]
